FAERS Safety Report 7527681-8 (Version None)
Quarter: 2011Q2

REPORT INFORMATION
  Report Type: 
  Country: None (occurrence: None)
  Receive Date: 20110527
  Receipt Date: 20110518
  Transmission Date: 20111010
  Serious: Yes (Other)
  Sender: FDA-Public Use
  Company Number: 1000020235

PATIENT
  Sex: Male

DRUGS (2)
  1. TERGRETOL CR (CARBAMAZEPINE) [Concomitant]
  2. ESCITALOPRAM [Suspect]
     Indication: ANXIETY
     Dosage: 5 MG (5 MG,1 IN 1 D), ORAL
     Route: 048

REACTIONS (1)
  - EPILEPSY [None]
